FAERS Safety Report 18363007 (Version 1)
Quarter: 2020Q4

REPORT INFORMATION
  Report Type: Report from Study
  Country: US (occurrence: US)
  Receive Date: 20201008
  Receipt Date: 20201008
  Transmission Date: 20210114
  Serious: Yes (Hospitalization)
  Sender: FDA-Public Use
  Company Number: US-VERTEX PHARMACEUTICALS-2020-017879

PATIENT
  Age: 24 Year
  Sex: Female

DRUGS (1)
  1. TRIKAFTA [Suspect]
     Active Substance: ELEXACAFTOR\IVACAFTOR\TEZACAFTOR
     Indication: CYSTIC FIBROSIS
     Dosage: 200 MG ELEXA/ 100 MG TEZA/ 150MG MG IVA QAM; 150MG IVA QPM
     Route: 048
     Dates: start: 20200831, end: 20200902

REACTIONS (5)
  - Pain [Not Recovered/Not Resolved]
  - Back pain [Unknown]
  - Feeling cold [Not Recovered/Not Resolved]
  - Abdominal pain upper [Unknown]
  - Increased viscosity of upper respiratory secretion [Not Recovered/Not Resolved]

NARRATIVE: CASE EVENT DATE: 2020
